FAERS Safety Report 6210687-9 (Version None)
Quarter: 2009Q2

REPORT INFORMATION
  Report Type: 
  Country: None (occurrence: None)
  Receive Date: 20090528
  Receipt Date: 20090528
  Transmission Date: 20091009
  Serious: Yes (Hospitalization)
  Sender: FDA-Public Use
  Company Number: None

PATIENT
  Age: 28 Year
  Sex: Female
  Weight: 54.4316 kg

DRUGS (2)
  1. ZOLOFT [Suspect]
     Indication: ANXIETY
     Dosage: 30 1 PER DAY AT NIGHT PO
     Route: 048
     Dates: start: 20090214, end: 20090217
  2. ZOLOFT [Suspect]
     Indication: POSTPARTUM DEPRESSION
     Dosage: 30 1 PER DAY AT NIGHT PO
     Route: 048
     Dates: start: 20090214, end: 20090217

REACTIONS (15)
  - ANOREXIA [None]
  - ANXIETY [None]
  - APATHY [None]
  - CONDITION AGGRAVATED [None]
  - CONFUSIONAL STATE [None]
  - DEPRESSION [None]
  - DISTURBANCE IN ATTENTION [None]
  - FATIGUE [None]
  - FEELING ABNORMAL [None]
  - HYPOAESTHESIA FACIAL [None]
  - MALAISE [None]
  - PARAESTHESIA [None]
  - RESTLESSNESS [None]
  - TOOTH DISORDER [None]
  - TREMOR [None]
